FAERS Safety Report 10219535 (Version 2)
Quarter: 2014Q3

REPORT INFORMATION
  Report Type: Spontaneous
  Country: US (occurrence: None)
  Receive Date: 20140603
  Receipt Date: 20140711
  Transmission Date: 20150326
  Serious: Yes (Other)
  Sender: FDA-Public Use
  Company Number: 2014-US-006145

PATIENT
  Age: 59 Year
  Sex: Female
  Weight: 46.3 kg

DRUGS (17)
  1. TRAMADOL (TRAMADOL HYDROCHLORIDE) [Concomitant]
     Active Substance: TRAMADOL HYDROCHLORIDE
  2. ESTRACE (ESTRADIOL) [Concomitant]
  3. SKELAXIN (METAXALONE) [Concomitant]
  4. XYREM [Suspect]
     Active Substance: SODIUM OXYBATE
     Indication: SLEEP DISORDER
     Route: 048
     Dates: start: 20140512, end: 201405
  5. KENALOG [Concomitant]
     Active Substance: TRIAMCINOLONE ACETONIDE
  6. KETOCONAZOLE (KETOCONAZOLE) [Concomitant]
     Active Substance: KETOCONAZOLE
  7. CLOTRIMAZOLE (CLOTRIMAZOLE) [Concomitant]
  8. VALTREX [Concomitant]
     Active Substance: VALACYCLOVIR HYDROCHLORIDE
  9. MYRBETRIQ (MIRABERGON) [Concomitant]
  10. VOLTAREN [Concomitant]
     Active Substance: DICLOFENAC SODIUM
  11. LORAZEPAM (LORAZEPAM) [Concomitant]
     Active Substance: LORAZEPAM
  12. RELPAX (ELETRIPTA HYDROBROMIDE) [Concomitant]
  13. LEXAPRO (ESCITALORAM OXALATE) [Concomitant]
  14. LOSARTAN (LOSARTAN POTASSIUM) [Concomitant]
  15. LEVSIN (HYOSCYAMINE SULFATE) [Concomitant]
  16. ARMOUR THYROID (THYROID) [Concomitant]
  17. HYDROCORTISONE (HYDROCORTISONE VALERATE) [Concomitant]

REACTIONS (28)
  - Poor quality sleep [None]
  - Muscle tightness [None]
  - Fatigue [None]
  - Pain [None]
  - Underdose [None]
  - Off label use [None]
  - Tremor [None]
  - Myalgia [None]
  - Nocturia [None]
  - Nausea [None]
  - Headache [None]
  - Dry mouth [None]
  - Condition aggravated [None]
  - Stomatitis [None]
  - Migraine [None]
  - Mucosal inflammation [None]
  - Dizziness [None]
  - Swelling face [None]
  - Dysphagia [None]
  - Muscle spasms [None]
  - Abnormal dreams [None]
  - Dysstasia [None]
  - Throat tightness [None]
  - Drug intolerance [None]
  - Intentional product misuse [None]
  - Fibromyalgia [None]
  - Hallucination [None]
  - Incorrect dose administered [None]

NARRATIVE: CASE EVENT DATE: 20140512
